FAERS Safety Report 19083757 (Version 5)
Quarter: 2021Q2

REPORT INFORMATION
  Report Type: Spontaneous
  Country: DE (occurrence: DE)
  Receive Date: 20210401
  Receipt Date: 20210421
  Transmission Date: 20210717
  Serious: Yes (Other)
  Sender: FDA-Public Use
  Company Number: DE-ORGANON-O2103DEU003108

PATIENT
  Age: 34 Year
  Sex: Male

DRUGS (14)
  1. TEMAZEPAM. [Suspect]
     Active Substance: TEMAZEPAM
     Dosage: UNK
  2. SERTRALINE [Suspect]
     Active Substance: SERTRALINE HYDROCHLORIDE
     Dosage: UNK
  3. CANNABINOL [Suspect]
     Active Substance: CANNABINOL
     Dosage: REPORTED AS ^TETRAHYDROCANNABINOL (THC)^
  4. LEVOMETHADONE [Suspect]
     Active Substance: LEVOMETHADONE
     Dosage: UNK
  5. CODEINE [Suspect]
     Active Substance: CODEINE
     Dosage: UNK
  6. ALPRAZOLAM. [Suspect]
     Active Substance: ALPRAZOLAM
     Dosage: UNK
  7. PREGABALIN. [Suspect]
     Active Substance: PREGABALIN
     Dosage: UNK
  8. OXAZEPAM. [Suspect]
     Active Substance: OXAZEPAM
     Dosage: UNK
  9. COCAINE [Suspect]
     Active Substance: COCAINE
     Dosage: UNK
  10. DIAZEPAM. [Suspect]
     Active Substance: DIAZEPAM
     Dosage: UNK
  11. LORAZEPAM. [Suspect]
     Active Substance: LORAZEPAM
     Dosage: UNK
  12. MIRTAZAPINE. [Suspect]
     Active Substance: MIRTAZAPINE
     Dosage: UNK
  13. MORPHINE [Suspect]
     Active Substance: MORPHINE
     Dosage: UNK
  14. NORDAZEPAM [Suspect]
     Active Substance: NORDAZEPAM
     Dosage: UNK

REACTIONS (6)
  - Dysarthria [Unknown]
  - Substance abuse [Unknown]
  - Bradykinesia [Unknown]
  - Gait disturbance [Unknown]
  - Vestibular disorder [Unknown]
  - Restlessness [Unknown]
